FAERS Safety Report 4314563-8 (Version None)
Quarter: 2004Q1

REPORT INFORMATION
  Report Type: 
  Country: None (occurrence: None)
  Receive Date: 20040309
  Receipt Date: 20040301
  Transmission Date: 20041129
  Serious: Yes (Hospitalization)
  Sender: FDA-Public Use
  Company Number: WAES 0403USA00145

PATIENT
  Age: 36 Year
  Sex: Male

DRUGS (4)
  1. PRIMAXIN [Suspect]
     Indication: PANCREATITIS ACUTE
     Dates: start: 20040228, end: 20040229
  2. CLINDAMYCIN [Concomitant]
     Indication: PANCREATITIS ACUTE
     Dates: start: 20040228, end: 20040229
  3. PEPCID [Concomitant]
     Indication: PANCREATITIS ACUTE
     Route: 048
     Dates: start: 20040228, end: 20040229
  4. NAFAMOSTAT [Suspect]
     Indication: PANCREATITIS ACUTE
     Dates: start: 20040228

REACTIONS (2)
  - ERYTHEMA [None]
  - PURPURA [None]
